FAERS Safety Report 21489739 (Version 3)
Quarter: 2022Q4

REPORT INFORMATION
  Report Type: Spontaneous
  Country: US (occurrence: US)
  Receive Date: 20221021
  Receipt Date: 20221226
  Transmission Date: 20230113
  Serious: No
  Sender: FDA-Public Use
  Company Number: US-PHARMAESSENTIA CORPORATION-US-2022-PEC-000810

PATIENT

DRUGS (3)
  1. BESREMI [Suspect]
     Active Substance: ROPEGINTERFERON ALFA-2B-NJFT
     Indication: Polycythaemia vera
     Dosage: 50 MCG, Q2W (EVERY 14 DAYS)
     Route: 058
     Dates: start: 20220829
  2. BESREMI [Suspect]
     Active Substance: ROPEGINTERFERON ALFA-2B-NJFT
     Dosage: UNK
     Route: 065
  3. HYDROXY [Concomitant]
     Indication: Product used for unknown indication
     Dosage: UNK
     Route: 065

REACTIONS (20)
  - Feeling abnormal [Unknown]
  - Paraesthesia [Unknown]
  - Discomfort [Unknown]
  - Euphoric mood [Unknown]
  - Inflammation [Recovering/Resolving]
  - Haematocrit abnormal [Not Recovered/Not Resolved]
  - Abdominal discomfort [Unknown]
  - Nail discolouration [Unknown]
  - Platelet count abnormal [Unknown]
  - Reflexes abnormal [Unknown]
  - Neck pain [Unknown]
  - Influenza [Recovered/Resolved]
  - Poor quality sleep [Unknown]
  - Sleep disorder [Unknown]
  - Arthralgia [Recovering/Resolving]
  - Fatigue [Not Recovered/Not Resolved]
  - Back pain [Unknown]
  - Migraine [Unknown]
  - Pain [Unknown]
  - Myalgia [Unknown]
